FAERS Safety Report 10261377 (Version 2)
Quarter: 2016Q2

REPORT INFORMATION
  Report Type: Spontaneous
  Country: US (occurrence: US)
  Receive Date: 20140626
  Receipt Date: 20160530
  Transmission Date: 20160815
  Serious: Yes (Other)
  Sender: FDA-Public Use
  Company Number: US-JNJFOC-20140613444

PATIENT
  Sex: Female

DRUGS (1)
  1. RISPERDAL CONSTA [Suspect]
     Active Substance: RISPERIDONE
     Indication: PRODUCT USED FOR UNKNOWN INDICATION
     Route: 030

REACTIONS (6)
  - Suicidal behaviour [Unknown]
  - Abasia [Unknown]
  - Dyspnoea [Unknown]
  - Lower limb fracture [Unknown]
  - Upper limb fracture [Unknown]
  - Incorrect route of drug administration [Unknown]
